FAERS Safety Report 10047362 (Version 1)
Quarter: 2014Q1

REPORT INFORMATION
  Report Type: Spontaneous
  Country: US (occurrence: PR)
  Receive Date: 20140331
  Receipt Date: 20140331
  Transmission Date: 20141002
  Serious: No
  Sender: FDA-Public Use
  Company Number: US-BAYER-2014-044963

PATIENT
  Sex: 0

DRUGS (1)
  1. REGORAFENIB [Suspect]

REACTIONS (1)
  - Hepatic function abnormal [Recovered/Resolved]
